FAERS Safety Report 8295626-1 (Version None)
Quarter: 2012Q2

REPORT INFORMATION
  Report Type: 
  Country: None (occurrence: None)
  Receive Date: 20120413
  Receipt Date: 20120413
  Transmission Date: 20120825
  Serious: No
  Sender: FDA-Public Use
  Company Number: None

PATIENT
  Age: 39 Year
  Sex: Male

DRUGS (1)
  1. CLINDAMYCIN [Suspect]
     Dates: start: 20090708, end: 20090718

REACTIONS (7)
  - DISTURBANCE IN ATTENTION [None]
  - TRANSAMINASES INCREASED [None]
  - FATIGUE [None]
  - CHROMATURIA [None]
  - OCULAR ICTERUS [None]
  - BLOOD BILIRUBIN INCREASED [None]
  - PRURITUS [None]
